FAERS Safety Report 4608039-8 (Version None)
Quarter: 2005Q2

REPORT INFORMATION
  Report Type: 
  Country: None (occurrence: None)
  Receive Date: 20050303
  Receipt Date: 20041111
  Transmission Date: 20051028
  Serious: No
  Sender: FDA-Public Use
  Company Number: 210399

PATIENT
  Age: 47 Year
  Sex: Female

DRUGS (5)
  1. XOLAIR [Suspect]
     Indication: ASTHMA
     Dosage: 225 MG, QW2, SUBCUTANEOUS
     Route: 058
     Dates: start: 20031101
  2. ADVAIR (SALMETEROL XINAFOATE, FLUTICASONE PROPIONATE) [Concomitant]
  3. ALLEGRA [Concomitant]
  4. SINGULAIR [Concomitant]
  5. ALBUTEROL (ALBUTEROL, ALBUTEROL SULFATE) [Concomitant]

REACTIONS (1)
  - RENAL CYST [None]
